FAERS Safety Report 9637206 (Version 2)
Quarter: 2016Q2

REPORT INFORMATION
  Report Type: Report from Study
  Country: HU (occurrence: HU)
  Receive Date: 20131022
  Receipt Date: 20160530
  Transmission Date: 20160815
  Serious: Yes (Other)
  Sender: FDA-Public Use
  Company Number: HU-JNJFOC-20131010414

PATIENT
  Age: 61 Year
  Sex: Female

DRUGS (1)
  1. STELARA [Suspect]
     Active Substance: USTEKINUMAB
     Indication: PSORIASIS
     Route: 058
     Dates: start: 20121127

REACTIONS (4)
  - Nasopharyngitis [Recovered/Resolved]
  - Jaundice [Unknown]
  - Pyrexia [Recovered/Resolved]
  - Omphalitis [Unknown]

NARRATIVE: CASE EVENT DATE: 20130917
